FAERS Safety Report 7681552-5 (Version None)
Quarter: 2011Q3

REPORT INFORMATION
  Report Type: 
  Country: None (occurrence: None)
  Receive Date: 20110812
  Receipt Date: 20110810
  Transmission Date: 20111222
  Serious: Yes (Death, Other)
  Sender: FDA-Public Use
  Company Number: PHEH2010US00506

PATIENT
  Sex: Female
  Weight: 74.336 kg

DRUGS (7)
  1. CELEBREX [Concomitant]
  2. BEXTRA [Concomitant]
  3. AREDIA [Suspect]
     Indication: METASTASES TO BONE
  4. ZYRTEC [Concomitant]
  5. ZOMETA [Suspect]
  6. AREDIA [Suspect]
     Indication: BREAST CANCER METASTATIC
     Dosage: 90 MG, UNK
     Route: 042
  7. AMOXICILLIN [Concomitant]

REACTIONS (37)
  - INJURY [None]
  - DISABILITY [None]
  - BONE PAIN [None]
  - BRONCHITIS [None]
  - DIVERTICULUM [None]
  - ACUTE SINUSITIS [None]
  - HEPATIC STEATOSIS [None]
  - LYMPHADENOPATHY [None]
  - ARTHRALGIA [None]
  - NASAL CONGESTION [None]
  - ANXIETY [None]
  - ATELECTASIS [None]
  - OSTEOPENIA [None]
  - HOT FLUSH [None]
  - CHRONIC OBSTRUCTIVE PULMONARY DISEASE [None]
  - PERIPHERAL VASCULAR DISORDER [None]
  - HYPERTENSION [None]
  - UPPER RESPIRATORY TRACT INFECTION [None]
  - GROIN PAIN [None]
  - INTERVERTEBRAL DISC DEGENERATION [None]
  - INTERVERTEBRAL DISC SPACE NARROWING [None]
  - LUNG NEOPLASM [None]
  - PNEUMONIA [None]
  - DYSPNOEA [None]
  - CHEST PAIN [None]
  - NEOPLASM MALIGNANT [None]
  - OSTEONECROSIS OF JAW [None]
  - PAIN [None]
  - ANHEDONIA [None]
  - GASTROOESOPHAGEAL REFLUX DISEASE [None]
  - ORAL TORUS [None]
  - DEATH [None]
  - EMPHYSEMA [None]
  - BLOOD CHOLESTEROL INCREASED [None]
  - TENDERNESS [None]
  - PLEURAL EFFUSION [None]
  - NEOPLASM PROGRESSION [None]
